FAERS Safety Report 25534441 (Version 2)
Quarter: 2025Q3

REPORT INFORMATION
  Report Type: Spontaneous
  Country: EU (occurrence: EU)
  Receive Date: 20250709
  Receipt Date: 20250711
  Transmission Date: 20251021
  Serious: Yes (Other)
  Sender: TORRENT PHARMA INC.
  Company Number: None

PATIENT
  Sex: Female
  Weight: 90 kg

DRUGS (5)
  1. QUETIAPINE [Suspect]
     Active Substance: QUETIAPINE
     Indication: Psychotic disorder
     Route: 048
     Dates: start: 202401, end: 202410
  2. ASPIRIN [Concomitant]
     Active Substance: ASPIRIN
     Indication: Prophylaxis
     Dosage: UNKNOWN WHEN STARTED, UNTIL GW 37
     Route: 048
  3. MICONAZOLE [Concomitant]
     Active Substance: MICONAZOLE
     Indication: Tinea versicolour
     Dosage: UNKNOWN
     Route: 003
     Dates: start: 202403, end: 202403
  4. NYSTATIN [Concomitant]
     Active Substance: NYSTATIN
     Indication: Tinea versicolour
     Route: 003
  5. DINOPROSTONE [Concomitant]
     Active Substance: DINOPROSTONE
     Indication: Labour induction
     Route: 067

REACTIONS (2)
  - Gestational diabetes [Recovered/Resolved]
  - Exposure during pregnancy [Unknown]
